FAERS Safety Report 23281282 (Version 2)
Quarter: 2023Q4

REPORT INFORMATION
  Report Type: Report from Study
  Country: FR (occurrence: FR)
  Receive Date: 20231211
  Receipt Date: 20231220
  Transmission Date: 20240110
  Serious: Yes (Other)
  Sender: FDA-Public Use
  Company Number: FR-JNJFOC-20231059195

PATIENT
  Age: 21 Year
  Sex: Female

DRUGS (2)
  1. SPRAVATO [Suspect]
     Active Substance: ESKETAMINE
     Indication: Depression
     Dates: start: 20230919, end: 20230922
  2. SPRAVATO [Suspect]
     Active Substance: ESKETAMINE
     Dates: start: 20230922, end: 20230926

REACTIONS (4)
  - Suicidal ideation [Recovering/Resolving]
  - Paranoid personality disorder [Unknown]
  - Anxiety [Recovering/Resolving]
  - Drug ineffective [Recovering/Resolving]

NARRATIVE: CASE EVENT DATE: 20230922
